FAERS Safety Report 20661434 (Version 2)
Quarter: 2022Q2

REPORT INFORMATION
  Report Type: Spontaneous
  Country: US (occurrence: US)
  Receive Date: 20220401
  Receipt Date: 20220428
  Transmission Date: 20220720
  Serious: No
  Sender: FDA-Public Use
  Company Number: US-NOVARTISTESTPH-NVSC2022US073743

PATIENT
  Sex: Female

DRUGS (2)
  1. COMBIPATCH [Suspect]
     Active Substance: ESTRADIOL\NORETHINDRONE ACETATE
     Indication: Menopause
     Dosage: 1 DOSAGE FORM (0.05/0.14 MG, EVERY 3-4 DAYS)
     Route: 062
     Dates: start: 202109, end: 202112
  2. COMBIPATCH [Suspect]
     Active Substance: ESTRADIOL\NORETHINDRONE ACETATE
     Dosage: 1 DOSAGE FORM (0.05/0.250 MG, EVERY 3-4 DAYS)
     Route: 062
     Dates: start: 202201

REACTIONS (3)
  - Blood test abnormal [Unknown]
  - Adverse event [Recovered/Resolved]
  - Product dose omission issue [Recovered/Resolved]

NARRATIVE: CASE EVENT DATE: 20211201
